FAERS Safety Report 15988827 (Version 3)
Quarter: 2019Q2

REPORT INFORMATION
  Report Type: Report from Study
  Country: US (occurrence: US)
  Receive Date: 20190221
  Receipt Date: 20190429
  Transmission Date: 20190711
  Serious: Yes (Hospitalization)
  Sender: FDA-Public Use
  Company Number: US-BIOGEN-2019BI00698339

PATIENT
  Age: 56 Year
  Sex: Female

DRUGS (1)
  1. AVONEX [Suspect]
     Active Substance: INTERFERON BETA-1A
     Indication: MULTIPLE SCLEROSIS
     Route: 050
     Dates: start: 20181017, end: 20190131

REACTIONS (4)
  - Anger [Unknown]
  - Multiple sclerosis relapse [Recovered/Resolved]
  - Mood swings [Unknown]
  - Depression [Unknown]

NARRATIVE: CASE EVENT DATE: 20190131
